FAERS Safety Report 9965281 (Version 1)
Quarter: 2014Q1

REPORT INFORMATION
  Report Type: Report from Study
  Country: US (occurrence: US)
  Receive Date: 20140305
  Receipt Date: 20140305
  Transmission Date: 20141002
  Serious: No
  Sender: FDA-Public Use
  Company Number: US-ABBVIE-13P-163-1127926-00

PATIENT
  Age: 48 Year
  Sex: Female

DRUGS (12)
  1. HUMIRA [Suspect]
     Indication: CROHN^S DISEASE
     Dosage: LOADING DOSE
     Dates: start: 201307
  2. LEVOTHYROXINE [Concomitant]
     Indication: HYPOTHYROIDISM
  3. LIALDA [Concomitant]
     Indication: CROHN^S DISEASE
  4. BUDESONIDE [Concomitant]
     Indication: CROHN^S DISEASE
  5. VICODIN [Concomitant]
     Indication: PRODUCT USED FOR UNKNOWN INDICATION
     Dosage: 1-3 A DAY AS NEEDED
  6. ALLERGY MEDICINE [Concomitant]
     Indication: HYPERSENSITIVITY
  7. LIDOCAINE [Concomitant]
     Indication: ANAL FISSURE
     Route: 061
  8. ANOTHER TOPICAL [Concomitant]
     Indication: ANAL FISSURE
     Route: 061
  9. VITAMIN B [Concomitant]
     Indication: VITAMIN SUPPLEMENTATION
     Dosage: DAILY
  10. IRON [Concomitant]
     Indication: MINERAL SUPPLEMENTATION
     Dosage: DAILY
  11. FOLIC ACID [Concomitant]
     Indication: VITAMIN SUPPLEMENTATION
     Dosage: DAILY
  12. MULTI VITAMIN [Concomitant]
     Indication: VITAMIN SUPPLEMENTATION
     Dosage: DAILY

REACTIONS (3)
  - Wrong technique in drug usage process [Recovered/Resolved]
  - Drug dose omission [Recovered/Resolved]
  - Injection site pain [Recovered/Resolved]
